FAERS Safety Report 24659601 (Version 1)
Quarter: 2024Q4

REPORT INFORMATION
  Report Type: Spontaneous
  Country: US (occurrence: None)
  Receive Date: 20241125
  Receipt Date: 20241125
  Transmission Date: 20250115
  Serious: Yes (Death)
  Sender: Public
  Company Number: None

PATIENT
  Age: 77 Year
  Sex: Male

DRUGS (1)
  1. PIRFENIDONE [Suspect]
     Active Substance: PIRFENIDONE
     Indication: Idiopathic pulmonary fibrosis
     Dosage: 267MG TID ORAL
     Route: 048
     Dates: start: 20240924, end: 20241111

REACTIONS (5)
  - Hepatic cirrhosis [None]
  - Autoimmune hepatitis [None]
  - Hepatitis viral [None]
  - Drug-induced liver injury [None]
  - Cardiac failure congestive [None]

NARRATIVE: CASE EVENT DATE: 20241119
